FAERS Safety Report 6236614-6 (Version None)
Quarter: 2009Q2

REPORT INFORMATION
  Report Type: 
  Country: None (occurrence: None)
  Receive Date: 20090619
  Receipt Date: 20081117
  Transmission Date: 20091009
  Serious: No
  Sender: FDA-Public Use
  Company Number: US-ASTRAZENECA-2008UW11585

PATIENT
  Sex: Male

DRUGS (6)
  1. ATACAND [Suspect]
     Indication: HEART RATE ABNORMAL
     Route: 048
     Dates: start: 20080730
  2. ATACAND [Suspect]
     Indication: HYPERTENSION
     Route: 048
     Dates: start: 20080730
  3. ATACAND [Suspect]
     Indication: ARTERIOSCLEROSIS
     Route: 048
     Dates: start: 20080730
  4. CARDIZEM [Concomitant]
  5. PRAVACHOL [Concomitant]
  6. TYLENOL (CAPLET) [Concomitant]

REACTIONS (7)
  - BALANCE DISORDER [None]
  - DIZZINESS [None]
  - FALL [None]
  - HEADACHE [None]
  - HEART RATE IRREGULAR [None]
  - POLLAKIURIA [None]
  - VERTIGO [None]
